FAERS Safety Report 4554533-8 (Version None)
Quarter: 2005Q1

REPORT INFORMATION
  Report Type: 
  Country: None (occurrence: None)
  Receive Date: 20041227
  Receipt Date: 20041108
  Transmission Date: 20050727
  Serious: No
  Sender: FDA-Public Use
  Company Number: SP00341

PATIENT
  Age: 71 Year
  Sex: Male
  Weight: 85.2762 kg

DRUGS (8)
  1. XIFAXAN [Suspect]
     Indication: DIARRHOEA
     Dosage: 200 MG/BID, ORAL
     Route: 048
     Dates: start: 20040818, end: 20040823
  2. TERAZOSIN [Concomitant]
  3. DIOVAN HCT [Concomitant]
  4. ALLOPURINOL [Concomitant]
  5. FLAGYL [Concomitant]
  6. LOMOTIL [Concomitant]
  7. FUROATE CREAM MANTLE (CREAM) [Concomitant]
  8. CLOBETASOL OINTMENT (OINTMENT) [Concomitant]

REACTIONS (1)
  - DERMATITIS EXFOLIATIVE [None]
